FAERS Safety Report 14191454 (Version 1)
Quarter: 2017Q4

REPORT INFORMATION
  Report Type: Spontaneous
  Country: US (occurrence: US)
  Receive Date: 20171115
  Receipt Date: 20171115
  Transmission Date: 20180321
  Serious: Yes (Hospitalization, Other)
  Sender: FDA-Public Use
  Company Number: US-DSJP-DSU-2017-138784

PATIENT

DRUGS (2)
  1. BENICAR [Suspect]
     Active Substance: OLMESARTAN MEDOXOMIL
     Indication: PRODUCT USED FOR UNKNOWN INDICATION
     Dosage: 20 MG, QD
     Route: 048
     Dates: start: 20050601, end: 20140929
  2. BENICAR HCT [Suspect]
     Active Substance: HYDROCHLOROTHIAZIDE\OLMESARTAN MEDOXOMIL
     Indication: PRODUCT USED FOR UNKNOWN INDICATION
     Dosage: 20/12.5 MG, QD
     Route: 048
     Dates: start: 20050601, end: 20140929

REACTIONS (8)
  - Gastrooesophageal reflux disease [Not Recovered/Not Resolved]
  - Haemorrhoids [Unknown]
  - Sprue-like enteropathy [Not Recovered/Not Resolved]
  - Irritable bowel syndrome [Not Recovered/Not Resolved]
  - Diverticulum [Unknown]
  - Large intestine polyp [Unknown]
  - Rectal haemorrhage [Unknown]
  - Diverticulitis [Unknown]

NARRATIVE: CASE EVENT DATE: 2007
